FAERS Safety Report 8076585-3 (Version None)
Quarter: 2012Q1

REPORT INFORMATION
  Report Type: 
  Country: None (occurrence: None)
  Receive Date: 20120127
  Receipt Date: 20120112
  Transmission Date: 20120608
  Serious: Yes (Other)
  Sender: FDA-Public Use
  Company Number: CA-JNJFOC-20120111344

PATIENT
  Sex: Female
  Weight: 72.6 kg

DRUGS (1)
  1. REMICADE [Suspect]
     Indication: RHEUMATOID ARTHRITIS
     Route: 042
     Dates: end: 20110701

REACTIONS (7)
  - PNEUMONIA [None]
  - ASTHENIA [None]
  - GAIT DISTURBANCE [None]
  - INAPPROPRIATE AFFECT [None]
  - HERPES ZOSTER [None]
  - FATIGUE [None]
  - HEADACHE [None]
